FAERS Safety Report 9249680 (Version 1)
Quarter: 2013Q2

REPORT INFORMATION
  Report Type: Spontaneous
  Country: US (occurrence: US)
  Receive Date: 20130423
  Receipt Date: 20130423
  Transmission Date: 20140414
  Serious: No
  Sender: FDA-Public Use
  Company Number: US-BRISTOL-MYERS SQUIBB COMPANY-17309097

PATIENT
  Age: 79 Year
  Sex: Female

DRUGS (3)
  1. YERVOY [Suspect]
     Indication: MALIGNANT MELANOMA
     Dosage: 2 DOSE TAKEN?2ND DOSE:01DEC2012?14NOV12:227MG?05DEC12:227MG
     Route: 042
     Dates: start: 20121114, end: 20121215
  2. TRIAMCINOLONE ACETONIDE CREAM [Concomitant]
  3. PRILOSEC [Concomitant]

REACTIONS (1)
  - Rash pruritic [Unknown]
